FAERS Safety Report 25022347 (Version 1)
Quarter: 2025Q1

REPORT INFORMATION
  Report Type: Report from Study
  Country: KR (occurrence: KR)
  Receive Date: 20250228
  Receipt Date: 20250228
  Transmission Date: 20250409
  Serious: Yes (Death, Hospitalization)
  Sender: SAMSUNG BIOEPIS
  Company Number: KR-SAMSUNG BIOEPIS-SB-2025-06487

PATIENT
  Age: 92 Year
  Sex: Male

DRUGS (2)
  1. AFLIBERCEPT [Suspect]
     Active Substance: AFLIBERCEPT
     Indication: Retinal vein occlusion
     Dates: start: 20241203
  2. AFLIBERCEPT [Suspect]
     Active Substance: AFLIBERCEPT
     Indication: Macular oedema

REACTIONS (1)
  - Pulmonary oedema [Fatal]
